FAERS Safety Report 14211909 (Version 1)
Quarter: 2017Q4

REPORT INFORMATION
  Report Type: Spontaneous
  Country: US (occurrence: US)
  Receive Date: 20171122
  Receipt Date: 20171122
  Transmission Date: 20180321
  Serious: Yes (Hospitalization)
  Sender: FDA-Public Use
  Company Number: US-JNJFOC-20171124663

PATIENT
  Age: 74 Year
  Sex: Male

DRUGS (11)
  1. WARFARIN [Concomitant]
     Active Substance: WARFARIN
  2. CARVEDILOL. [Concomitant]
     Active Substance: CARVEDILOL
  3. DIGOXIN. [Concomitant]
     Active Substance: DIGOXIN
  4. VITAMIN D2 [Concomitant]
     Active Substance: ERGOCALCIFEROL
  5. ATORVASTATIN [Concomitant]
     Active Substance: ATORVASTATIN
  6. LEVEMIR [Concomitant]
     Active Substance: INSULIN DETEMIR
  7. IMBRUVICA [Suspect]
     Active Substance: IBRUTINIB
     Indication: MANTLE CELL LYMPHOMA
     Route: 048
     Dates: start: 20170828, end: 2017
  8. TORSEMIDE. [Concomitant]
     Active Substance: TORSEMIDE
  9. HYDRALAZINE [Concomitant]
     Active Substance: HYDRALAZINE HYDROCHLORIDE
  10. CLOPIDOGREL [Concomitant]
     Active Substance: CLOPIDOGREL BISULFATE
  11. ACETAMINOPHEN. [Concomitant]
     Active Substance: ACETAMINOPHEN

REACTIONS (2)
  - Malaise [Recovering/Resolving]
  - Cardiac disorder [Recovering/Resolving]

NARRATIVE: CASE EVENT DATE: 201710
